FAERS Safety Report 18783548 (Version 2)
Quarter: 2021Q3

REPORT INFORMATION
  Report Type: Spontaneous
  Country: US (occurrence: US)
  Receive Date: 20210125
  Receipt Date: 20210825
  Transmission Date: 20211014
  Serious: Yes (Other)
  Sender: FDA-Public Use
  Company Number: US-PFIZER INC-2021044239

PATIENT
  Age: 61 Year
  Sex: Female
  Weight: 235 kg

DRUGS (12)
  1. LETROZOLE. [Concomitant]
     Active Substance: LETROZOLE
     Dosage: 2.5 MG
  2. AMLODIPINE BESYLATE. [Concomitant]
     Active Substance: AMLODIPINE BESYLATE
     Dosage: 5 MG
  3. VITAMIN A AND E [Concomitant]
     Dosage: UNK
  4. IBRANCE [Suspect]
     Active Substance: PALBOCICLIB
     Indication: BREAST CANCER FEMALE
     Dosage: 125 MG, DAILY (1 DAILY FOR 21 DAYS)
     Route: 048
     Dates: start: 2015
  5. CALCIUM [Concomitant]
     Active Substance: CALCIUM
     Dosage: 600 MG
  6. XGEVA [Concomitant]
     Active Substance: DENOSUMAB
     Dosage: 120 MG/1.7 VIAL
  7. MELOXICAM. [Concomitant]
     Active Substance: MELOXICAM
     Dosage: 100 %
  8. TYLENOL ARTHRITIS PAIN [Concomitant]
     Active Substance: ACETAMINOPHEN
     Dosage: 650 MG
  9. FISH OIL [Concomitant]
     Active Substance: FISH OIL
     Dosage: (100?150 MG)
  10. VITAMIN E [Concomitant]
     Active Substance: .ALPHA.-TOCOPHEROL
     Dosage: 1000 IU
  11. IBRANCE [Suspect]
     Active Substance: PALBOCICLIB
     Dosage: 125 MG, CYCLIC (125 MG QD (DAILY FOR 21 DAYS)
     Dates: start: 20210116
  12. D3 50 [Concomitant]
     Dosage: 1250 UG

REACTIONS (10)
  - Infection [Unknown]
  - Ear pain [Unknown]
  - Back pain [Not Recovered/Not Resolved]
  - Skin lesion [Unknown]
  - Hepatomegaly [Not Recovered/Not Resolved]
  - Chronic sinusitis [Unknown]
  - Oropharyngeal pain [Unknown]
  - Bone pain [Unknown]
  - Cataract [Unknown]
  - Pain in jaw [Unknown]

NARRATIVE: CASE EVENT DATE: 2021
